FAERS Safety Report 9850560 (Version 1)
Quarter: 2014Q1

REPORT INFORMATION
  Report Type: Spontaneous
  Country: DE (occurrence: DE)
  Receive Date: 20140128
  Receipt Date: 20140128
  Transmission Date: 20141002
  Serious: Yes (Other)
  Sender: FDA-Public Use
  Company Number: DE-BAYER-2014-011572

PATIENT
  Sex: Male
  Weight: 3.47 kg

DRUGS (1)
  1. BETAFERON [Suspect]
     Route: 064

REACTIONS (2)
  - Amniotic cavity infection [None]
  - Foetal exposure during pregnancy [None]
